FAERS Safety Report 22248970 (Version 1)
Quarter: 2023Q2

REPORT INFORMATION
  Report Type: Spontaneous
  Country: US (occurrence: US)
  Receive Date: 20230425
  Receipt Date: 20230425
  Transmission Date: 20230721
  Serious: No
  Sender: FDA-Public Use
  Company Number: US-drreddys-LIT/USA/23/0162797

PATIENT
  Age: 37 Year
  Sex: Female

DRUGS (14)
  1. LORAZEPAM [Suspect]
     Active Substance: LORAZEPAM
     Indication: Withdrawal syndrome
  2. ZOLPIDEM [Suspect]
     Active Substance: ZOLPIDEM TARTRATE
     Indication: Withdrawal syndrome
  3. ARIPIPRAZOLE [Suspect]
     Active Substance: ARIPIPRAZOLE
     Indication: Withdrawal syndrome
  4. ESOMEPRAZOLE [Suspect]
     Active Substance: ESOMEPRAZOLE
     Indication: Withdrawal syndrome
  5. MAGNESIUM [Suspect]
     Active Substance: MAGNESIUM
     Indication: Withdrawal syndrome
  6. ESCITALOPRAM [Suspect]
     Active Substance: ESCITALOPRAM OXALATE
     Indication: Withdrawal syndrome
  7. DOMPERIDONE [Concomitant]
     Active Substance: DOMPERIDONE
     Indication: Galactorrhoea
  8. DOMPERIDONE [Concomitant]
     Active Substance: DOMPERIDONE
     Dosage: DISCONTINUED DOMPERIDONE BY DECREASING 10MG OF HER TOTAL DAILY DOSAGE AT WEEKLY INTERVALS.
  9. DOMPERIDONE [Concomitant]
     Active Substance: DOMPERIDONE
     Dosage: RETURNED TO BASELINE DOSE
  10. DOMPERIDONE [Concomitant]
     Active Substance: DOMPERIDONE
     Dosage: INCREASED DOSE
  11. DOMPERIDONE [Concomitant]
     Active Substance: DOMPERIDONE
     Dosage: TAPERING REGIMEN BY DECREASING THE TOTAL DAILY DOSAGE BY 10MG AT 2 WEEK INTERVALS RATHER THAN WEEKLY
  12. DOMPERIDONE [Concomitant]
     Active Substance: DOMPERIDONE
     Dosage: TAPER ONCE AGAIN BY DECREASING 10MG OF TOTAL DAILY DOSAGE AT WEEKLY INTERVALS
  13. DOMPERIDONE [Concomitant]
     Active Substance: DOMPERIDONE
  14. DOMPERIDONE [Concomitant]
     Active Substance: DOMPERIDONE
     Dosage: DECREASED DAILY DOSE BY 2.5MG, EVERY 2 WEEKS FOR 4 WEEKS, FOLLOWED BY 2.5MG REDUCTIONS, EVERY WEEK A

REACTIONS (2)
  - Withdrawal syndrome [Unknown]
  - Drug ineffective [Unknown]
